FAERS Safety Report 9691406 (Version 1)
Quarter: 2013Q4

REPORT INFORMATION
  Report Type: Spontaneous
  Country: US (occurrence: US)
  Receive Date: 20131115
  Receipt Date: 20131115
  Transmission Date: 20140711
  Serious: Yes (Other)
  Sender: FDA-Public Use
  Company Number: US-TARO-2013P1020858

PATIENT
  Age: 58 Year
  Sex: Male
  Weight: 76.66 kg

DRUGS (10)
  1. WARFARIN SODIUM TABLETS USP 2.5MG [Suspect]
     Indication: PULMONARY EMBOLISM
     Route: 048
     Dates: start: 20130926, end: 20130930
  2. WARFARIN SODIUM TABLETS USP 2.5MG [Suspect]
     Indication: PULMONARY EMBOLISM
     Route: 048
     Dates: start: 2013, end: 2013
  3. WARFARIN SODIUM TABLETS USP 2.5MG [Suspect]
     Indication: PULMONARY EMBOLISM
     Route: 048
     Dates: start: 20131001, end: 2013
  4. LOVENOX [Concomitant]
     Dates: start: 20130926
  5. VALTREX [Concomitant]
  6. GABAPENTIN [Concomitant]
  7. TRAMADOL [Concomitant]
  8. UNSPECIFIED VITAMINS [Concomitant]
  9. CALCIUM [Concomitant]
  10. DOCUSATE SODIUM [Concomitant]

REACTIONS (8)
  - Back pain [Not Recovered/Not Resolved]
  - Bursitis [Not Recovered/Not Resolved]
  - Local swelling [Not Recovered/Not Resolved]
  - Nausea [Not Recovered/Not Resolved]
  - Mobility decreased [Unknown]
  - Middle insomnia [Unknown]
  - International normalised ratio decreased [Unknown]
  - Food interaction [Unknown]
